FAERS Safety Report 11604051 (Version 1)
Quarter: 2015Q4

REPORT INFORMATION
  Report Type: Spontaneous
  Country: US (occurrence: None)
  Receive Date: 20151006
  Receipt Date: 20151006
  Transmission Date: 20160304
  Serious: Yes (Hospitalization)
  Sender: FDA-Public Use
  Company Number: None

PATIENT
  Age: 78 Year
  Sex: Female
  Weight: 58.97 kg

DRUGS (12)
  1. PLAVIX [Concomitant]
     Active Substance: CLOPIDOGREL BISULFATE
  2. ASA [Concomitant]
     Active Substance: ASPIRIN
  3. OMEGA 3 [Concomitant]
     Active Substance: OMEGA-3 FATTY ACIDS
  4. COQ10 [Concomitant]
     Active Substance: UBIDECARENONE
  5. CALCIUM WITH D [Concomitant]
     Active Substance: CALCIUM\VITAMIN D
  6. GLAUCOMA DROPS BETIMOL [Concomitant]
  7. TYLENOL EXTRA STRENGTH [Concomitant]
     Active Substance: ACETAMINOPHEN
  8. ATORVASTATIN [Suspect]
     Active Substance: ATORVASTATIN
     Indication: LOW DENSITY LIPOPROTEIN INCREASED
     Dosage: 1 PILL DAILY
     Route: 048
     Dates: start: 20150304, end: 20150725
  9. RENEXA ER [Concomitant]
  10. LATANOPROST. [Concomitant]
     Active Substance: LATANOPROST
  11. NITRO SPRAY [Concomitant]
  12. PROBIOTIC [Concomitant]
     Active Substance: PROBIOTICS NOS

REACTIONS (9)
  - Neuralgia [None]
  - Hypoaesthesia [None]
  - Muscular weakness [None]
  - Chest pain [None]
  - Pain [None]
  - Myalgia [None]
  - Musculoskeletal pain [None]
  - Arthralgia [None]
  - Myositis [None]

NARRATIVE: CASE EVENT DATE: 20150410
